FAERS Safety Report 23126853 (Version 1)
Quarter: 2023Q4

REPORT INFORMATION
  Report Type: Spontaneous
  Country: IT (occurrence: IT)
  Receive Date: 20231030
  Receipt Date: 20231030
  Transmission Date: 20240110
  Serious: Yes (Death, Hospitalization, Other)
  Sender: FDA-Public Use
  Company Number: None

PATIENT
  Age: 81 Year
  Sex: Male

DRUGS (1)
  1. ONCOTICE [Suspect]
     Active Substance: BACILLUS CALMETTE-GUERIN SUBSTRAIN TICE LIVE ANTIGEN
     Indication: Bladder cancer
     Dosage: ONE 2 ML/WEEK BOTTLE FOR THREE CONSECUTIVE WEEKS PER MAINTENANCE CYCLE
     Route: 043
     Dates: start: 202209, end: 20230915

REACTIONS (7)
  - Pancreatitis acute [Fatal]
  - Autoimmune haemolytic anaemia [Fatal]
  - Thrombocytopenia [Fatal]
  - Acute kidney injury [Fatal]
  - Hepatitis acute [Fatal]
  - Haematuria [Not Recovered/Not Resolved]
  - Pyrexia [Unknown]

NARRATIVE: CASE EVENT DATE: 20230915
